FAERS Safety Report 5040969-8 (Version None)
Quarter: 2006Q2

REPORT INFORMATION
  Report Type: 
  Country: None (occurrence: None)
  Receive Date: 20060601
  Receipt Date: 20060307
  Transmission Date: 20061013
  Serious: No
  Sender: FDA-Public Use
  Company Number: 2006PV009808

PATIENT
  Age: 74 Year
  Sex: Male
  Weight: 92.9874 kg

DRUGS (4)
  1. BYETTA [Suspect]
     Indication: DIABETES MELLITUS NON-INSULIN-DEPENDENT
     Dosage: 10 MCG;BID;SC
     Route: 058
     Dates: start: 20060119
  2. AVANDIA [Suspect]
     Indication: DRUG USE FOR UNKNOWN INDICATION
     Dosage: 4 MG;QD;PO
     Route: 048
     Dates: start: 20050101
  3. METFORMIN [Concomitant]
  4. STARLIX [Concomitant]

REACTIONS (3)
  - DRUG EFFECT DECREASED [None]
  - INJECTION SITE COLDNESS [None]
  - OEDEMA PERIPHERAL [None]
